FAERS Safety Report 7626837-3 (Version None)
Quarter: 2011Q3

REPORT INFORMATION
  Report Type: 
  Country: None (occurrence: None)
  Receive Date: 20110721
  Receipt Date: 20110712
  Transmission Date: 20111222
  Serious: Yes (Other)
  Sender: FDA-Public Use
  Company Number: US-ASTRAZENECA-2011SE33789

PATIENT
  Age: 55 Year
  Sex: Female

DRUGS (4)
  1. HAWTHORN BERRY [Concomitant]
  2. GARLIC [Concomitant]
  3. OLIVE LEAF [Concomitant]
  4. ATACAND HCT [Suspect]
     Route: 048

REACTIONS (3)
  - MIGRAINE WITH AURA [None]
  - BLOOD PRESSURE INCREASED [None]
  - DRUG DOSE OMISSION [None]
